FAERS Safety Report 5729224-8 (Version None)
Quarter: 2008Q2

REPORT INFORMATION
  Report Type: 
  Country: None (occurrence: None)
  Receive Date: 20080430
  Receipt Date: 20071220
  Transmission Date: 20081010
  Serious: No
  Sender: FDA-Public Use
  Company Number: 2007PV033871

PATIENT
  Age: 63 Year
  Sex: Female
  Weight: 94.3482 kg

DRUGS (4)
  1. SYMLIN [Suspect]
     Indication: TYPE 2 DIABETES MELLITUS
     Dosage: 150 MCG;TID;SC ; 120 MCG;TID;SC ; 180 MCG;TID;SC
     Route: 058
     Dates: start: 20070301, end: 20070501
  2. SYMLIN [Suspect]
     Indication: TYPE 2 DIABETES MELLITUS
     Dosage: 150 MCG;TID;SC ; 120 MCG;TID;SC ; 180 MCG;TID;SC
     Route: 058
     Dates: start: 20070501
  3. HUMALOG MIX [Concomitant]
  4. METFORMIN [Concomitant]

REACTIONS (3)
  - ARTHRALGIA [None]
  - DRUG EFFECT DECREASED [None]
  - JOINT CREPITATION [None]
